FAERS Safety Report 7562498-X (Version None)
Quarter: 2011Q2

REPORT INFORMATION
  Report Type: 
  Country: None (occurrence: None)
  Receive Date: 20110622
  Receipt Date: 20110608
  Transmission Date: 20111010
  Serious: Yes (Hospitalization)
  Sender: FDA-Public Use
  Company Number: NL-CELGENEUS-114-21880-11052254

PATIENT
  Sex: Male
  Weight: 83 kg

DRUGS (8)
  1. REVLIMID [Suspect]
     Dosage: 5 MILLIGRAM
     Route: 048
     Dates: start: 20110615
  2. DEXAMETHASONE [Suspect]
     Indication: MULTIPLE MYELOMA
     Route: 048
     Dates: start: 20110412
  3. REVLIMID [Suspect]
     Dosage: 5 MILLIGRAM
     Route: 048
     Dates: start: 20110511, end: 20110515
  4. DEXAMETHASONE [Suspect]
     Route: 048
     Dates: start: 20110511, end: 20110514
  5. DEXAMETHASONE [Suspect]
     Route: 048
     Dates: start: 20110615
  6. REVLIMID [Suspect]
     Indication: MULTIPLE MYELOMA
     Dosage: 5 MILLIGRAM
     Route: 048
     Dates: start: 20110412
  7. FRAXIPARINE [Concomitant]
     Dosage: .3 MILLILITER
     Route: 058
     Dates: start: 20110421, end: 20110429
  8. FUROSEMIDE [Concomitant]
     Dosage: .3 MILLILITER
     Route: 048
     Dates: start: 20110425, end: 20110428

REACTIONS (1)
  - CHRONIC OBSTRUCTIVE PULMONARY DISEASE [None]
